FAERS Safety Report 24324177 (Version 2)
Quarter: 2024Q3

REPORT INFORMATION
  Report Type: Spontaneous
  Country: US (occurrence: US)
  Receive Date: 20240916
  Receipt Date: 20240925
  Transmission Date: 20241016
  Serious: Yes (Hospitalization, Other)
  Sender: BIOVITRUM
  Company Number: US-BIOVITRUM-2024-US-011990

PATIENT
  Age: 16 Year
  Sex: Male

DRUGS (9)
  1. EMAPALUMAB [Suspect]
     Active Substance: EMAPALUMAB
     Indication: Haemophagocytic lymphohistiocytosis
     Dosage: EVERY 3 DAYS
  2. EMAPALUMAB [Suspect]
     Active Substance: EMAPALUMAB
     Dosage: EVERY 2 WEEKS
  3. ANAKINRA [Suspect]
     Active Substance: ANAKINRA
     Indication: Haemophagocytic lymphohistiocytosis
     Dosage: 4 SHOTS DAILY
  4. ANAKINRA [Suspect]
     Active Substance: ANAKINRA
     Dosage: ONE SHOT DAILY
  5. ANAKINRA [Suspect]
     Active Substance: ANAKINRA
     Dosage: TWO TIMES DAILY (BID)
  6. ANAKINRA [Suspect]
     Active Substance: ANAKINRA
     Dosage: TWICE DAILY (BID)
  7. PREDNISONE [Suspect]
     Active Substance: PREDNISONE
     Indication: Haemophagocytic lymphohistiocytosis
     Dosage: DAILY
  8. XELJANZ [Suspect]
     Active Substance: TOFACITINIB CITRATE
     Indication: Haemophagocytic lymphohistiocytosis
     Dosage: DAILY
  9. ILARIS [Suspect]
     Active Substance: CANAKINUMAB
     Indication: Haemophagocytic lymphohistiocytosis

REACTIONS (19)
  - Opportunistic infection [Unknown]
  - Haemophagocytic lymphohistiocytosis [Unknown]
  - Condition aggravated [Unknown]
  - Drug intolerance [Unknown]
  - Treatment noncompliance [Unknown]
  - Hypotension [Recovering/Resolving]
  - Product dose omission issue [Unknown]
  - Tooth abscess [Recovering/Resolving]
  - Legionella infection [Recovered/Resolved]
  - Product use complaint [Unknown]
  - Inflammation [Unknown]
  - Inflammatory marker increased [Unknown]
  - Respiratory distress [Unknown]
  - Tachycardia [Unknown]
  - Hypertransaminasaemia [Unknown]
  - Off label use [Unknown]
  - Epstein-Barr virus infection reactivation [Unknown]
  - Pyrexia [Unknown]
  - Respiratory failure [Recovering/Resolving]
